FAERS Safety Report 7001179-8 (Version None)
Quarter: 2010Q3

REPORT INFORMATION
  Report Type: 
  Country: None (occurrence: None)
  Receive Date: 20100920
  Receipt Date: 20100701
  Transmission Date: 20110219
  Serious: No
  Sender: FDA-Public Use
  Company Number: US-ASTRAZENECA-2007UW06144

PATIENT
  Age: 40 Year
  Sex: Female
  Weight: 77.6 kg

DRUGS (20)
  1. SEROQUEL [Suspect]
     Indication: SLEEP DISORDER
     Dosage: 25 TO 200 MG
     Route: 048
     Dates: start: 20030123, end: 20070817
  2. SEROQUEL [Suspect]
     Dosage: 25 MG -200 MG
     Route: 048
     Dates: start: 20030422, end: 20031125
  3. SEROQUEL [Suspect]
     Route: 048
     Dates: start: 20070111, end: 20081119
  4. ZYPREXA [Suspect]
     Indication: DEPRESSION
     Route: 065
     Dates: start: 20010531, end: 20020826
  5. ZYPREXA [Suspect]
     Route: 065
     Dates: start: 20020228, end: 20020826
  6. RISPERDAL [Suspect]
     Indication: DEPRESSION
     Route: 065
     Dates: end: 20010716
  7. ABILIFY [Suspect]
     Route: 065
     Dates: start: 20030801, end: 20040801
  8. ABILIFY [Suspect]
     Route: 065
     Dates: start: 20040501
  9. HALDOL [Suspect]
     Route: 065
     Dates: start: 20030501
  10. THORAZINE [Suspect]
     Route: 065
     Dates: start: 20010101, end: 20030601
  11. THORAZINE [Suspect]
     Route: 065
     Dates: start: 20051001, end: 20060101
  12. THORAZINE [Suspect]
     Route: 065
     Dates: start: 20060101
  13. GEODON [Concomitant]
     Dates: start: 20060701
  14. PAXIL [Concomitant]
     Dosage: 10 MG - 20 MG
     Dates: start: 20020924
  15. AMBIEN [Concomitant]
     Dosage: 10 MG - 20 MG
     Route: 048
     Dates: start: 20010811
  16. DIAZEPAM [Concomitant]
     Dosage: 5 MG - 10 MG
     Dates: start: 20020723
  17. TRAZODONE HCL [Concomitant]
     Indication: INSOMNIA
     Dosage: 50 MG - 100 MG
     Route: 048
     Dates: start: 20010811
  18. AMITRIPTYLINE HCL [Concomitant]
     Dates: start: 20050303
  19. XANAX [Concomitant]
  20. KLONOPIN [Concomitant]

REACTIONS (4)
  - DECREASED APPETITE [None]
  - HYPERGLYCAEMIA [None]
  - TYPE 2 DIABETES MELLITUS [None]
  - WEIGHT INCREASED [None]
